FAERS Safety Report 19420811 (Version 2)
Quarter: 2021Q2

REPORT INFORMATION
  Report Type: Spontaneous
  Country: EG (occurrence: EG)
  Receive Date: 20210616
  Receipt Date: 20210630
  Transmission Date: 20210717
  Serious: Yes (Hospitalization)
  Sender: FDA-Public Use
  Company Number: EG-NOVOPROD-820221

PATIENT
  Age: 490 Month
  Sex: Male

DRUGS (4)
  1. THIOTACID [Concomitant]
     Active Substance: .ALPHA.-LIPOIC ACID
     Indication: VITAMIN SUPPLEMENTATION
     Dosage: 600MG(1 TABLET MORNING ? 1 TABLET EVENING )? STARTED FROM 2 MONTH
     Route: 048
  2. MILGA [Concomitant]
     Active Substance: BENFOTIAMINE\CYANOCOBALAMIN\PYRIDOXINE HYDROCHLORIDE
     Indication: VITAMIN SUPPLEMENTATION
     Dosage: 1 TABLETS/DAY AFTER LUNCH STARTED FROM 4 ? 5 YEARS
     Route: 048
  3. LANTUS [Concomitant]
     Active Substance: INSULIN GLARGINE
     Indication: DIABETES MELLITUS
     Dosage: 30 IU, QD (EVENING)
     Route: 058
  4. NOVORAPID [Suspect]
     Active Substance: INSULIN ASPART
     Indication: DIABETES MELLITUS
     Dosage: 40 IU, QD (15 BEFORE BREAKFAST?15 BEFORE LUNCH?10 BEFORE DINNER)
     Route: 058
     Dates: start: 20210423

REACTIONS (2)
  - Condition aggravated [Recovered/Resolved]
  - Diabetic foot [Recovered/Resolved]
